FAERS Safety Report 9033489 (Version 6)
Quarter: 2013Q4

REPORT INFORMATION
  Report Type: Spontaneous
  Country: US (occurrence: US)
  Receive Date: 20130128
  Receipt Date: 20131010
  Transmission Date: 20140711
  Serious: Yes (Other)
  Sender: FDA-Public Use
  Company Number: US-AMGEN-USASP2013004519

PATIENT
  Age: 49 Year
  Sex: Male
  Weight: 106.8 kg

DRUGS (8)
  1. ENBREL [Suspect]
     Indication: PSORIATIC ARTHROPATHY
     Dosage: 25 MG, 2 TIMES/WK
     Route: 058
     Dates: start: 20071101, end: 201301
  2. ENBREL [Suspect]
     Indication: PSORIASIS
  3. METHOTREXATE [Concomitant]
     Indication: PSORIATIC ARTHROPATHY
     Dosage: 12.5 MG, QWK
  4. METHOTREXATE [Concomitant]
     Indication: PSORIASIS
  5. FOLIC ACID [Concomitant]
     Dosage: UNK
  6. LOSARTAN [Concomitant]
     Indication: BLOOD PRESSURE INCREASED
     Dosage: UNK
     Route: 048
  7. INFLUENZA VACCINE [Concomitant]
     Indication: IMMUNISATION
     Dosage: 0.5 ML, UNK
     Route: 030
     Dates: start: 20121220
  8. AVAPRO [Concomitant]
     Dosage: UNK

REACTIONS (25)
  - Human polyomavirus infection [Unknown]
  - Intraductal papillary mucinous neoplasm [Unknown]
  - Renal vein occlusion [Unknown]
  - Renal infarct [Unknown]
  - Renal cyst [Unknown]
  - Immunodeficiency [Unknown]
  - Coagulopathy [Unknown]
  - Arthritis reactive [Unknown]
  - Skin lesion [Unknown]
  - Benign neoplasm of skin [Unknown]
  - Urethral stenosis [Unknown]
  - Bladder dysfunction [Unknown]
  - Rib fracture [Recovered/Resolved]
  - Prostatitis [Unknown]
  - Creatinine urine increased [Not Recovered/Not Resolved]
  - Protein urine present [Not Recovered/Not Resolved]
  - Liver function test abnormal [Unknown]
  - Psoriatic arthropathy [Unknown]
  - Oropharyngeal spasm [Recovered/Resolved]
  - Rash [Unknown]
  - Abdominal pain [Unknown]
  - Nausea [Unknown]
  - Vitamin D decreased [Unknown]
  - Neutrophil count abnormal [Unknown]
  - Psoriasis [Unknown]
